FAERS Safety Report 9105163 (Version 1)
Quarter: 2013Q1

REPORT INFORMATION
  Report Type: Spontaneous
  Country: SE (occurrence: SE)
  Receive Date: 20130220
  Receipt Date: 20130220
  Transmission Date: 20140127
  Serious: Yes (Hospitalization)
  Sender: FDA-Public Use
  Company Number: SE-SANOFI-AVENTIS-2013SA013055

PATIENT
  Age: 77 Year
  Sex: Female

DRUGS (14)
  1. MULTAQ [Suspect]
     Indication: PRODUCT USED FOR UNKNOWN INDICATION
     Route: 048
     Dates: start: 20121125
  2. SILDENAFIL CITRATE [Suspect]
     Indication: PRODUCT USED FOR UNKNOWN INDICATION
     Route: 048
     Dates: start: 20120613
  3. NEXIUM /UNK/ [Concomitant]
  4. FELODIPINE/METOPROLOL [Concomitant]
  5. SIMVASTATIN [Concomitant]
  6. ZOLPIDEM [Concomitant]
  7. LOSARTAN [Concomitant]
  8. WARAN [Concomitant]
  9. MOLLIPECT [Concomitant]
  10. FURIX [Concomitant]
  11. CITODON [Concomitant]
  12. OXASCAND [Concomitant]
  13. AMLODIPINE [Concomitant]
  14. GLYTRIN [Concomitant]

REACTIONS (3)
  - Tic [Recovered/Resolved]
  - Muscle contractions involuntary [Recovered/Resolved]
  - Tremor [Recovered/Resolved]
